FAERS Safety Report 17911857 (Version 1)
Quarter: 2020Q2

REPORT INFORMATION
  Report Type: Spontaneous
  Country: US (occurrence: US)
  Receive Date: 20200618
  Receipt Date: 20200618
  Transmission Date: 20200714
  Serious: Yes (Life-Threatening, Hospitalization, Other)
  Sender: FDA-Public Use
  Company Number: None

PATIENT
  Age: 15 Year
  Sex: Female
  Weight: 61.7 kg

DRUGS (2)
  1. MEDTRONIC INSULIN PUMP [Suspect]
     Active Substance: DEVICE
     Indication: TYPE 1 DIABETES MELLITUS
  2. NOVOLOG [Suspect]
     Active Substance: INSULIN ASPART

REACTIONS (4)
  - Suicide attempt [None]
  - Hypoglycaemia [None]
  - Intentional overdose [None]
  - Intentional device misuse [None]

NARRATIVE: CASE EVENT DATE: 20200617
